FAERS Safety Report 10512365 (Version 1)
Quarter: 2014Q4

REPORT INFORMATION
  Report Type: Report from Study
  Country: US (occurrence: US)
  Receive Date: 20141010
  Receipt Date: 20141010
  Transmission Date: 20150528
  Serious: Yes (Other)
  Sender: FDA-Public Use
  Company Number: US-ACTELION-A-US2014-106478

PATIENT
  Age: 68 Year
  Sex: Female

DRUGS (6)
  1. TRACLEER [Concomitant]
     Active Substance: BOSENTAN\BOSENTAN MONOHYDRATE
  2. HYDREA [Concomitant]
     Active Substance: HYDROXYUREA
  3. VENTAVIS [Suspect]
     Active Substance: ILOPROST
     Indication: COR PULMONALE CHRONIC
     Dosage: 5 MCG, UNK
     Route: 055
  4. VELETRI [Suspect]
     Active Substance: EPOPROSTENOL
     Indication: COR PULMONALE CHRONIC
     Dosage: 11 NG/KG, PER MIN
     Route: 042
     Dates: start: 20140527
  5. ADCIRCA [Concomitant]
     Active Substance: TADALAFIL
  6. VENTAVIS [Suspect]
     Active Substance: ILOPROST
     Dosage: 2.5 MCG, UNK
     Route: 055
     Dates: start: 20140829

REACTIONS (3)
  - Renal failure [Unknown]
  - Fluid retention [Unknown]
  - Renal disorder [Unknown]
